FAERS Safety Report 7605061-4 (Version None)
Quarter: 2011Q3

REPORT INFORMATION
  Report Type: 
  Country: None (occurrence: None)
  Receive Date: 20110713
  Receipt Date: 20090108
  Transmission Date: 20111222
  Serious: Yes (Death, Hospitalization, Other)
  Sender: FDA-Public Use
  Company Number: US-BAYER-200910078NA

PATIENT
  Age: 74 Year
  Sex: Male
  Weight: 100 kg

DRUGS (34)
  1. VANCOMYCIN [Concomitant]
     Dosage: 1 G, UNK
     Route: 042
     Dates: start: 20040212, end: 20040212
  2. RED BLOOD CELLS [Concomitant]
     Dosage: 3 U, UNK
     Route: 042
     Dates: start: 20040212, end: 20040212
  3. PROTAMINE SULFATE [Concomitant]
     Dosage: 300 MG, UNK
     Route: 042
     Dates: start: 20040212, end: 20040212
  4. OMNIPAQUE 140 [Concomitant]
     Indication: CATHETERISATION CARDIAC
     Dosage: 176 ML, UNK
     Dates: start: 20040212
  5. FLOVENT [Concomitant]
     Dosage: 2 PUFF(S), UNK
     Route: 048
  6. PHENYLEPHRINE HCL [Concomitant]
     Dosage: TITRATE
     Route: 042
     Dates: start: 20040212, end: 20040212
  7. FENTANYL-100 [Concomitant]
     Dosage: UNK
     Route: 042
     Dates: start: 20040212, end: 20040212
  8. PLASMALYTE [GLUCOSE,POTASSIUM CHLORIDE] [Concomitant]
     Dosage: 600 ML, PUMP PRIME
     Dates: start: 20040212, end: 20040212
  9. VERSED [Concomitant]
     Dosage: UNK
     Route: 042
     Dates: start: 20040212, end: 20040212
  10. EPINEPHRINE [Concomitant]
     Dosage: TITRATE
     Route: 042
     Dates: start: 20040212
  11. FRESH FROZEN PLASMA [Concomitant]
     Dosage: 2 U, UNK
     Route: 042
     Dates: start: 20040212, end: 20040212
  12. TRASYLOL [Suspect]
     Dosage: 200 ML PUMP PRIME
     Route: 042
     Dates: start: 20040212, end: 20040212
  13. GLYBURIDE [Concomitant]
     Dosage: 12 MG, UNK
     Route: 048
  14. HEPARIN [Concomitant]
     Dosage: 40000 U
     Route: 042
     Dates: start: 20040212, end: 20040212
  15. PANCURONIUM [Concomitant]
     Dosage: UNK
     Route: 042
     Dates: start: 20040212, end: 20040212
  16. METOPROLOL TARTRATE [Concomitant]
     Dosage: 5 MG, UNK
     Route: 042
     Dates: start: 20040212, end: 20040212
  17. PLATELETS [Concomitant]
     Dosage: 2 U, UNK
     Route: 042
     Dates: start: 20040212, end: 20040212
  18. PROTAMINE SULFATE [Concomitant]
     Dosage: 250 MG, UNK
     Route: 042
     Dates: start: 20040212, end: 20040212
  19. SEREVENT [Concomitant]
     Dosage: 2 PUFF(S), UNK
     Route: 048
  20. LOPRESSOR [Concomitant]
     Dosage: 15 MG, UNK
     Route: 042
     Dates: start: 20040212
  21. REGULAR INSULIN [Concomitant]
     Dosage: TITRATE
     Route: 042
  22. MILRINONE [Concomitant]
     Dosage: TITRATE
     Route: 042
     Dates: start: 20040212
  23. LEVOPHED [Concomitant]
     Dosage: TITRATE
     Route: 042
     Dates: start: 20040212
  24. TRASYLOL [Suspect]
     Dosage: 2000000 U, ONCE, LOADING DOSE
     Route: 042
     Dates: start: 20040212, end: 20040212
  25. ACETYLSALICYLIC ACID SRT [Concomitant]
     Dosage: 162 MG, UNK
     Route: 048
  26. VASOPRESSIN [Concomitant]
     Dosage: TITRATE
     Route: 042
     Dates: start: 20040212
  27. TRASYLOL [Suspect]
     Indication: CORONARY ARTERY BYPASS
     Dosage: 1 ML, ONCE, TEST DOSE
     Route: 042
     Dates: start: 20040212, end: 20040212
  28. THEO-24 [Concomitant]
     Dosage: 400 MG, UNK
     Route: 048
  29. HEPARIN [Concomitant]
     Dosage: TITRATE
     Route: 042
     Dates: start: 20040212
  30. MANNITOL [Concomitant]
     Dosage: 25 G, PUMP PRIME
     Dates: start: 20040212, end: 20040212
  31. GLUCOPHAGE [Concomitant]
     Dosage: 500 MG, UNK
     Route: 048
  32. MOBIC [Concomitant]
     Dosage: ONE DAILY
     Route: 048
  33. VIOXX [Concomitant]
     Route: 048
  34. HEPARIN [Concomitant]
     Dosage: 10000 U, PUMP PRIME
     Route: 042
     Dates: start: 20040212, end: 20040212

REACTIONS (7)
  - RENAL FAILURE [None]
  - PAIN [None]
  - CARDIAC FAILURE CONGESTIVE [None]
  - CEREBROVASCULAR ACCIDENT [None]
  - RENAL INJURY [None]
  - INJURY [None]
  - UNEVALUABLE EVENT [None]
